APPROVED DRUG PRODUCT: DEXAMETHASONE
Active Ingredient: DEXAMETHASONE
Strength: 6MG
Dosage Form/Route: TABLET;ORAL
Application: A215106 | Product #002 | TE Code: AB
Applicant: AMNEAL EU LTD
Approved: Oct 14, 2021 | RLD: No | RS: No | Type: RX